FAERS Safety Report 4708652-3 (Version None)
Quarter: 2005Q3

REPORT INFORMATION
  Report Type: 
  Country: None (occurrence: None)
  Receive Date: 20050707
  Receipt Date: 20050216
  Transmission Date: 20060218
  Serious: Yes (Other)
  Sender: FDA-Public Use
  Company Number: PHHO2005CA03000

PATIENT
  Age: 57 Year
  Sex: Female

DRUGS (5)
  1. GLEEVEC [Suspect]
     Dosage: 600 MG, QD
     Dates: start: 20030817, end: 20050109
  2. PREVACID [Concomitant]
  3. PREMARIN [Concomitant]
  4. CLIMARA [Concomitant]
  5. HYDROCHLOROTHIAZIDE [Concomitant]

REACTIONS (9)
  - ABDOMINAL PAIN UPPER [None]
  - BACK PAIN [None]
  - EAR INFECTION VIRAL [None]
  - NAUSEA [None]
  - OEDEMA PERIPHERAL [None]
  - PAIN IN EXTREMITY [None]
  - VERTIGO [None]
  - VOMITING [None]
  - WEIGHT INCREASED [None]
